FAERS Safety Report 19657754 (Version 1)
Quarter: 2021Q3

REPORT INFORMATION
  Report Type: Spontaneous
  Country: JP (occurrence: JP)
  Receive Date: 20210804
  Receipt Date: 20210804
  Transmission Date: 20211014
  Serious: Yes (Death, Other)
  Sender: FDA-Public Use
  Company Number: JP-CELGENEUS-JPN-20210800020

PATIENT
  Sex: Male
  Weight: 60.9 kg

DRUGS (45)
  1. REVLIMID [Suspect]
     Active Substance: LENALIDOMIDE
     Indication: FOLLICULAR LYMPHOMA
     Dosage: 20 MILLIGRAM
     Route: 048
     Dates: start: 20210224, end: 20210309
  2. KENKETSU ALBUMIN [Concomitant]
     Indication: OEDEMA
  3. FINIBAX [Concomitant]
     Active Substance: DORIPENEM MONOHYDRATE
     Indication: BACTERIAL INFECTION
  4. BAYASPIRIN [Concomitant]
     Active Substance: ASPIRIN
     Indication: PROPHYLAXIS
     Dosage: UNKNOWN
     Route: 048
     Dates: start: 20210224, end: 20210319
  5. FUROSEMIDE. [Concomitant]
     Active Substance: FUROSEMIDE
     Indication: PLEURAL EFFUSION
     Dosage: UNKNOWN
     Route: 041
     Dates: start: 20210318, end: 20210504
  6. MEROPENEM. [Concomitant]
     Active Substance: MEROPENEM
     Indication: NEUTROPENIA
     Dosage: UNKNOWN
     Route: 041
     Dates: start: 20210308, end: 20210315
  7. MEROPENEM. [Concomitant]
     Active Substance: MEROPENEM
     Indication: BACTERIAL INFECTION
     Dosage: UNKNOWN
     Route: 041
     Dates: start: 20210401, end: 20210408
  8. VFEND [Concomitant]
     Active Substance: VORICONAZOLE
     Indication: SYSTEMIC MYCOSIS
  9. FILGRASTIM [Concomitant]
     Active Substance: FILGRASTIM
     Indication: NEUTROPENIA
     Dosage: UNKNOWN
     Route: 058
     Dates: start: 20210312, end: 20210314
  10. FINIBAX [Concomitant]
     Active Substance: DORIPENEM MONOHYDRATE
     Indication: NEUTROPENIA
     Dosage: UNKNOWN
     Route: 041
     Dates: start: 20210316, end: 20210323
  11. FINIBAX [Concomitant]
     Active Substance: DORIPENEM MONOHYDRATE
     Indication: FEBRILE NEUTROPENIA
  12. ISEPAMICIN [Concomitant]
     Active Substance: ISEPAMICIN
     Indication: BACTERIAL INFECTION
     Dosage: UNKNOWN
     Route: 041
     Dates: start: 20210305, end: 20210307
  13. TEICOPLANIN [Concomitant]
     Active Substance: TEICOPLANIN
     Indication: NEUTROPENIA
     Dosage: UNKNOWN
     Route: 041
     Dates: start: 20210312, end: 20210318
  14. CEFMETAZOLE [Concomitant]
     Active Substance: CEFMETAZOLE
     Indication: BACTERIAL INFECTION
     Dosage: UNKNOWN
     Route: 041
     Dates: start: 20210503, end: 20210504
  15. TORASEMIDE [Concomitant]
     Active Substance: TORSEMIDE
     Indication: FOLLICULAR LYMPHOMA
     Dosage: UNKNOWN
     Route: 048
     Dates: start: 20210224, end: 20210323
  16. TORASEMIDE [Concomitant]
     Active Substance: TORSEMIDE
     Indication: OEDEMA
  17. LEVOFLOXACIN. [Concomitant]
     Active Substance: LEVOFLOXACIN
     Indication: BACTERIAL INFECTION
     Dosage: UNKNOWN
     Route: 041
     Dates: start: 20210227, end: 20210311
  18. URSODEOXYCHOLIC ACID [Concomitant]
     Active Substance: URSODIOL
     Indication: LIVER DISORDER
  19. FENTOS [Concomitant]
     Active Substance: FENTANYL
     Indication: FOLLICULAR LYMPHOMA
     Dosage: UNKNOWN
     Route: 061
     Dates: start: 20210415, end: 20210504
  20. FUROSEMIDE. [Concomitant]
     Active Substance: FUROSEMIDE
     Indication: FOLLICULAR LYMPHOMA
     Dosage: UNKNOWN
     Route: 041
     Dates: start: 20210224, end: 20210225
  21. FUROSEMIDE. [Concomitant]
     Active Substance: FUROSEMIDE
     Indication: OEDEMA
  22. CARBAZOCHROME [Concomitant]
     Active Substance: CARBAZOCHROME
     Indication: HAEMORRHAGIC DIATHESIS
  23. TRANEXAMIC ACID. [Concomitant]
     Active Substance: TRANEXAMIC ACID
     Indication: HAEMORRHAGIC DIATHESIS
  24. VFEND [Concomitant]
     Active Substance: VORICONAZOLE
     Indication: NEUTROPENIA
     Dosage: UNKNOWN
     Route: 041
     Dates: start: 20210310, end: 20210315
  25. VFEND [Concomitant]
     Active Substance: VORICONAZOLE
     Indication: FEBRILE NEUTROPENIA
  26. TEICOPLANIN [Concomitant]
     Active Substance: TEICOPLANIN
     Indication: FEBRILE NEUTROPENIA
  27. OMEGACIN [Concomitant]
     Active Substance: BIAPENEM
     Indication: BACTERIAL INFECTION
     Dosage: UNKNOWN
     Route: 041
     Dates: start: 20210324, end: 20210331
  28. FIRSTCIN [Concomitant]
     Active Substance: CEFOZOPRAN HYDROCHLORIDE
     Indication: BACTERIAL INFECTION
     Dosage: UNKNOWN
     Route: 041
     Dates: start: 20210417, end: 20210424
  29. RITUXIMAB. [Concomitant]
     Active Substance: RITUXIMAB
     Indication: FOLLICULAR LYMPHOMA
     Dosage: UNKNOWN
     Route: 065
  30. RITUXIMAB. [Concomitant]
     Active Substance: RITUXIMAB
     Route: 065
     Dates: start: 20210224, end: 20210303
  31. URSODEOXYCHOLIC ACID [Concomitant]
     Active Substance: URSODIOL
     Indication: FOLLICULAR LYMPHOMA
     Dosage: UNKNOWN
     Route: 048
     Dates: start: 20210224, end: 20210322
  32. FOLIAMIN [Concomitant]
     Active Substance: FOLIC ACID
     Indication: BLOOD FOLATE DECREASED
  33. KENKETSU ALBUMIN [Concomitant]
     Indication: FOLLICULAR LYMPHOMA
     Dosage: UNKNOWN
     Route: 041
     Dates: start: 20210407, end: 20210408
  34. KENKETSU ALBUMIN [Concomitant]
     Indication: PLEURAL EFFUSION
  35. TRANEXAMIC ACID. [Concomitant]
     Active Substance: TRANEXAMIC ACID
     Indication: FOLLICULAR LYMPHOMA
     Dosage: UNKNOWN
     Route: 041
     Dates: start: 20210414, end: 20210504
  36. TEICOPLANIN [Concomitant]
     Active Substance: TEICOPLANIN
     Indication: BACTERIAL INFECTION
  37. TAZOBACTAM/PIPERACILLIN [Concomitant]
     Active Substance: PIPERACILLIN SODIUM\TAZOBACTAM SODIUM
     Indication: BACTERIAL INFECTION
     Dosage: UNKNOWN
     Route: 041
     Dates: start: 20210425, end: 20210502
  38. ROPION [Concomitant]
     Active Substance: FLURBIPROFEN AXETIL
     Indication: TUMOUR FLARE
     Dosage: UNKNOWN
     Route: 041
     Dates: start: 20210309, end: 20210315
  39. CARBAZOCHROME [Concomitant]
     Active Substance: CARBAZOCHROME
     Indication: FOLLICULAR LYMPHOMA
     Dosage: UNKNOWN
     Route: 041
     Dates: start: 20210414, end: 20210504
  40. MAXIPIME [Concomitant]
     Active Substance: CEFEPIME HYDROCHLORIDE
     Indication: BACTERIAL INFECTION
     Dosage: UNKNOWN
     Route: 041
     Dates: start: 20210224, end: 20210226
  41. VANCOMYCIN [Concomitant]
     Active Substance: VANCOMYCIN
     Indication: BACTERIAL INFECTION
     Dosage: UNKNOWN
     Route: 041
     Dates: start: 20210320, end: 20210327
  42. TORASEMIDE [Concomitant]
     Active Substance: TORSEMIDE
     Indication: PLEURAL EFFUSION
  43. FOLIAMIN [Concomitant]
     Active Substance: FOLIC ACID
     Indication: FOLLICULAR LYMPHOMA
     Dosage: UNKNOWN
     Route: 048
     Dates: start: 20210302, end: 20210322
  44. MAXIPIME [Concomitant]
     Active Substance: CEFEPIME HYDROCHLORIDE
     Dosage: UNKNOWN
     Route: 041
     Dates: start: 20210409, end: 20210416
  45. MEROPENEM. [Concomitant]
     Active Substance: MEROPENEM
     Indication: FEBRILE NEUTROPENIA

REACTIONS (9)
  - Gastric ulcer [Unknown]
  - Follicular lymphoma [Fatal]
  - Myelosuppression [Unknown]
  - Hypokalaemia [Unknown]
  - Haemorrhagic diathesis [Unknown]
  - Blood folate decreased [Unknown]
  - Bacterial infection [Unknown]
  - Systemic mycosis [Unknown]
  - Bacterial infection [Unknown]

NARRATIVE: CASE EVENT DATE: 2021
